FAERS Safety Report 8385425-4 (Version None)
Quarter: 2012Q2

REPORT INFORMATION
  Report Type: 
  Country: None (occurrence: None)
  Receive Date: 20120525
  Receipt Date: 20120518
  Transmission Date: 20120825
  Serious: No
  Sender: FDA-Public Use
  Company Number: US-BIOGENIDEC-2012BI017728

PATIENT
  Age: 49 Year
  Sex: Female

DRUGS (2)
  1. AVONEX [Concomitant]
     Indication: MULTIPLE SCLEROSIS
     Route: 030
  2. TYSABRI [Suspect]
     Indication: MULTIPLE SCLEROSIS
     Route: 042
     Dates: start: 20110722

REACTIONS (7)
  - BREAST ENLARGEMENT [None]
  - MOBILITY DECREASED [None]
  - ASTHENIA [None]
  - WEIGHT INCREASED [None]
  - FRUSTRATION [None]
  - MOOD ALTERED [None]
  - DRUG INEFFECTIVE [None]
